FAERS Safety Report 4513025-2 (Version None)
Quarter: 2004Q4

REPORT INFORMATION
  Report Type: 
  Country: None (occurrence: None)
  Receive Date: 20041124
  Receipt Date: 20041124
  Transmission Date: 20050328
  Serious: No
  Sender: FDA-Public Use
  Company Number: None

PATIENT
  Sex: Female

DRUGS (1)
  1. CRESTOR [Suspect]

REACTIONS (2)
  - CARDIAC FAILURE CONGESTIVE [None]
  - MEDICATION ERROR [None]
